FAERS Safety Report 9212526 (Version 2)
Quarter: 2013Q2

REPORT INFORMATION
  Report Type: Spontaneous
  Country: US (occurrence: US)
  Receive Date: 20130405
  Receipt Date: 20130426
  Transmission Date: 20140414
  Serious: Yes (Hospitalization)
  Sender: FDA-Public Use
  Company Number: US-009507513-1304USA000653

PATIENT
  Age: 74 Year
  Sex: Male

DRUGS (6)
  1. REMERON [Suspect]
     Indication: ANXIETY
     Dosage: BOTH A 15 MG AND A 30 MG TABLET; TOTAL OF 45 MG
     Route: 048
     Dates: start: 201301
  2. REMERON [Suspect]
     Indication: ANXIETY
     Dosage: BOTH A 15 MG AND A 30 MG TABLET; TOTAL OF 45 MG
     Route: 048
     Dates: start: 201302
  3. CLONAZEPAM [Concomitant]
  4. THYROID [Concomitant]
  5. DILTIAZEM HYDROCHLORIDE [Concomitant]
  6. ASPIRIN [Concomitant]
     Indication: CARDIAC DISORDER

REACTIONS (5)
  - Social avoidant behaviour [Not Recovered/Not Resolved]
  - Feeling abnormal [Not Recovered/Not Resolved]
  - Blood cholesterol abnormal [Not Recovered/Not Resolved]
  - Blood triglycerides abnormal [Not Recovered/Not Resolved]
  - Nasal discomfort [Not Recovered/Not Resolved]
